FAERS Safety Report 8449547-1 (Version None)
Quarter: 2012Q2

REPORT INFORMATION
  Report Type: 
  Country: None (occurrence: None)
  Receive Date: 20120620
  Receipt Date: 20120615
  Transmission Date: 20120825
  Serious: Yes (Other)
  Sender: FDA-Public Use
  Company Number: ES-AMGEN-ESPSP2012034178

PATIENT
  Age: 72 Year
  Sex: Female
  Weight: 68 kg

DRUGS (5)
  1. VOLTAREN [Concomitant]
     Indication: HEADACHE
     Route: 048
  2. OMEPRAZOLE [Concomitant]
     Indication: ABDOMINAL PAIN UPPER
     Dosage: UNK UNK, QID
     Route: 048
  3. VALSARTAN  AND HYDROCHLOROTHIAZIDE [Concomitant]
     Indication: HYPERTENSION
     Route: 048
  4. PROLIA [Suspect]
     Indication: PRODUCT USED FOR UNKNOWN INDICATION
     Dosage: 60 MG, Q6MO
     Route: 058
     Dates: start: 20120412, end: 20120412
  5. ACETAMINOPHEN [Concomitant]
     Indication: HEADACHE
     Dosage: UNK UNK, Q8H
     Route: 048

REACTIONS (3)
  - TREMOR [None]
  - ANGIOEDEMA [None]
  - ANAPHYLACTIC REACTION [None]
